FAERS Safety Report 8271173-8 (Version None)
Quarter: 2012Q2

REPORT INFORMATION
  Report Type: 
  Country: None (occurrence: None)
  Receive Date: 20120410
  Receipt Date: 20120326
  Transmission Date: 20120825
  Serious: Yes (Hospitalization)
  Sender: FDA-Public Use
  Company Number: GB-ROCHE-1052869

PATIENT
  Sex: Male
  Weight: 79 kg

DRUGS (4)
  1. METHOTREXATE [Concomitant]
  2. AZULFIDINE [Concomitant]
  3. MABTHERA [Suspect]
     Indication: PRODUCT USED FOR UNKNOWN INDICATION
     Dosage: DATE OF LAST DOSE PRIOR TO SAE : 16 FEB 2011
     Dates: start: 20081216
  4. HYDROXYCHLOROQUINE SULFATE [Concomitant]

REACTIONS (2)
  - GASTROINTESTINAL HAEMORRHAGE [None]
  - ANORECTAL DISORDER [None]
